FAERS Safety Report 4610221-0 (Version None)
Quarter: 2005Q1

REPORT INFORMATION
  Report Type: 
  Country: None (occurrence: None)
  Receive Date: 20050316
  Receipt Date: 20050308
  Transmission Date: 20050727
  Serious: Yes (Other)
  Sender: FDA-Public Use
  Company Number: PHBS2005JP03508

PATIENT
  Age: 74 Year
  Sex: Female

DRUGS (2)
  1. LOCHOL [Suspect]
     Route: 048
  2. URSO 250 [Concomitant]
     Dosage: 600 MG, QD
     Route: 048
     Dates: start: 19980101, end: 20050101

REACTIONS (1)
  - INTERSTITIAL LUNG DISEASE [None]
